FAERS Safety Report 14148551 (Version 2)
Quarter: 2018Q2

REPORT INFORMATION
  Report Type: Spontaneous
  Country: DE (occurrence: DE)
  Receive Date: 20171101
  Receipt Date: 20180425
  Transmission Date: 20180711
  Serious: Yes (Other)
  Sender: FDA-Public Use
  Company Number: DE-TORRENT-00007289

PATIENT

DRUGS (1)
  1. VENLAFAXINE [Suspect]
     Active Substance: VENLAFAXINE HYDROCHLORIDE
     Indication: PRODUCT USED FOR UNKNOWN INDICATION
     Dosage: DAILY DOSE: 900 MG MILLIGRAM(S) EVERY DAY

REACTIONS (4)
  - Intentional overdose [Unknown]
  - Hypomagnesaemia [Unknown]
  - Suicide attempt [Unknown]
  - Toxicity to various agents [Unknown]
